FAERS Safety Report 16722455 (Version 1)
Quarter: 2019Q3

REPORT INFORMATION
  Report Type: Report from Study
  Country: US (occurrence: US)
  Receive Date: 20190820
  Receipt Date: 20190820
  Transmission Date: 20191005
  Serious: Yes (Hospitalization, Other)
  Sender: FDA-Public Use
  Company Number: US-GILEAD-2019-0424340

PATIENT
  Sex: Female

DRUGS (3)
  1. PANCREASE [PANCREATIN] [Concomitant]
  2. AZTREONAM LYSINE [Suspect]
     Active Substance: AZTREONAM LYSINE
     Indication: CYSTIC FIBROSIS
     Dosage: 75 MG, TID, ALTERNATING 28 DAYS ON AND 28 DAYS OFF
     Dates: start: 20180613
  3. TOBI [Suspect]
     Active Substance: TOBRAMYCIN
     Indication: CYSTIC FIBROSIS
     Dosage: INHALE 4 28MG CAPS BID FOR 28 DAYS ON AND 28 DAYS OFF
     Route: 065
     Dates: start: 20190530

REACTIONS (1)
  - Cystic fibrosis respiratory infection suppression [Unknown]
